FAERS Safety Report 5405619-7 (Version None)
Quarter: 2007Q3

REPORT INFORMATION
  Report Type: 
  Country: None (occurrence: None)
  Receive Date: 20070806
  Receipt Date: 20070727
  Transmission Date: 20080115
  Serious: Yes (Other)
  Sender: FDA-Public Use
  Company Number: PHBS2007US12663

PATIENT
  Age: 9 Year
  Sex: Male

DRUGS (1)
  1. OXCARBAZEPINE [Suspect]
     Indication: GRAND MAL CONVULSION
     Dosage: 26 MG/KG/DAY
     Route: 065

REACTIONS (3)
  - ELECTROENCEPHALOGRAM ABNORMAL [None]
  - MYOCLONIC EPILEPSY [None]
  - PETIT MAL EPILEPSY [None]
